FAERS Safety Report 8416803 (Version 5)
Quarter: 2012Q4

REPORT INFORMATION
  Report Type: 
  Country: CA (occurrence: CA)
  Receive Date: 20120220
  Receipt Date: 20121111
  Transmission Date: 20130627
  Serious: Yes (Other)
  Sender: FDA-Public Use
  Company Number: PHHY2012CA005448

PATIENT
  Age: 42 None
  Sex: Female
  Weight: 57 kg

DRUGS (9)
  1. EXTAVIA [Suspect]
     Indication: RELAPSING-REMITTING MULTIPLE SCLEROSIS
     Dosage: 4 MIU, QOD
     Route: 058
     Dates: start: 20120116
  2. EXTAVIA [Suspect]
     Dosage: 8 MIU, QOD
     Route: 058
     Dates: start: 20120203
  3. EXTAVIA [Suspect]
     Dosage: 4 MIU, QOD
     Route: 058
  4. EXTAVIA [Suspect]
     Dosage: 2 MIU, QOD
     Route: 058
     Dates: start: 201202, end: 201202
  5. EXTAVIA [Suspect]
     Dosage: 4 MIU, QOD
     Route: 058
  6. EXTAVIA [Suspect]
     Dosage: 8 MIU, QOD
     Route: 058
     Dates: start: 20120504, end: 20121008
  7. ADVIL [Concomitant]
     Dosage: 2 pills before bed
     Route: 048
     Dates: start: 20120124
  8. TYLENOL [Concomitant]
     Dosage: 1000 mg, (30 to 45 minutes prior to Extavia )
  9. ASPIRIN [Concomitant]

REACTIONS (18)
  - Uhthoff^s phenomenon [Unknown]
  - Pain in extremity [Recovered/Resolved]
  - Muscular weakness [Recovered/Resolved]
  - Sensation of heaviness [Recovered/Resolved]
  - Hypoaesthesia [Recovered/Resolved]
  - Paraesthesia [Unknown]
  - Skin burning sensation [Unknown]
  - Haematochezia [Unknown]
  - Feeling hot [Unknown]
  - Headache [Unknown]
  - Nausea [Recovered/Resolved]
  - Pain [Unknown]
  - Injection site reaction [Unknown]
  - Injection site erythema [Recovered/Resolved]
  - Injection site pain [Recovered/Resolved]
  - Injection site discomfort [Recovered/Resolved]
  - Myalgia [Unknown]
  - Drug intolerance [Recovered/Resolved]
